FAERS Safety Report 5154705-8 (Version None)
Quarter: 2006Q4

REPORT INFORMATION
  Report Type: 
  Country: None (occurrence: None)
  Receive Date: 20061116
  Receipt Date: 20061116
  Transmission Date: 20070319
  Serious: Yes (Hospitalization)
  Sender: FDA-Public Use
  Company Number: None

PATIENT
  Age: 54 Year
  Sex: Male

DRUGS (1)
  1. AMIODARONE HCL [Suspect]
     Indication: VENTRICULAR ARRHYTHMIA
     Dosage: 200MG DAILY PO
     Route: 048
     Dates: start: 20040201

REACTIONS (4)
  - BLOOD THYROID STIMULATING HORMONE DECREASED [None]
  - DRUG TOXICITY [None]
  - HYPERTHYROIDISM [None]
  - THYROIDITIS [None]
